FAERS Safety Report 7766766-8 (Version None)
Quarter: 2011Q3

REPORT INFORMATION
  Report Type: 
  Country: None (occurrence: None)
  Receive Date: 20110922
  Receipt Date: 20110722
  Transmission Date: 20111222
  Serious: No
  Sender: FDA-Public Use
  Company Number: US-ASTRAZENECA-2011SE43927

PATIENT
  Age: 38 Year
  Sex: Male
  Weight: 88.5 kg

DRUGS (4)
  1. METHADONE HCL [Concomitant]
  2. SEROQUEL XR [Suspect]
     Route: 048
     Dates: start: 20110523, end: 20110601
  3. ZANAFLEX [Concomitant]
  4. NORCO [Concomitant]

REACTIONS (2)
  - MUSCLE TWITCHING [None]
  - HANGOVER [None]
